FAERS Safety Report 22344837 (Version 3)
Quarter: 2023Q2

REPORT INFORMATION
  Report Type: Spontaneous
  Country: US (occurrence: US)
  Receive Date: 20230519
  Receipt Date: 20230621
  Transmission Date: 20230722
  Serious: No
  Sender: FDA-Public Use
  Company Number: US-BAYER-2023A065155

PATIENT
  Age: 55 Year
  Sex: Female

DRUGS (1)
  1. SKYLA [Suspect]
     Active Substance: LEVONORGESTREL
     Indication: Amenorrhoea
     Dosage: 14?G/DAY
     Route: 015
     Dates: start: 2019, end: 20230606

REACTIONS (4)
  - Device dislocation [Recovered/Resolved]
  - Device use issue [None]
  - Off label use of device [None]
  - Device use issue [None]

NARRATIVE: CASE EVENT DATE: 20190101
